FAERS Safety Report 5155286-5 (Version None)
Quarter: 2006Q4

REPORT INFORMATION
  Report Type: 
  Country: None (occurrence: None)
  Receive Date: 20061121
  Receipt Date: 20061106
  Transmission Date: 20070319
  Serious: Yes (Disabling)
  Sender: FDA-Public Use
  Company Number: PK-AVENTIS-200621443GDDC

PATIENT
  Age: 35 Year
  Sex: Female
  Weight: 60 kg

DRUGS (2)
  1. FLAGYL [Suspect]
     Indication: ABDOMINAL PAIN
     Route: 048
     Dates: start: 20060918, end: 20060918
  2. FLAGYL [Suspect]
     Dosage: DOSE: UNK
     Dates: start: 19970101

REACTIONS (5)
  - DRUG HYPERSENSITIVITY [None]
  - MOUTH ULCERATION [None]
  - PARAESTHESIA ORAL [None]
  - SENSORY DISTURBANCE [None]
  - URETHRAL PAIN [None]
